FAERS Safety Report 9270478 (Version 1)
Quarter: 2013Q2

REPORT INFORMATION
  Report Type: Spontaneous
  Country: JP (occurrence: JP)
  Receive Date: 20130503
  Receipt Date: 20130503
  Transmission Date: 20140414
  Serious: Yes (Other)
  Sender: FDA-Public Use
  Company Number: JP-SPECTRUM PHARMACEUTICALS, INC.-13-F-JP-00128

PATIENT
  Sex: 0

DRUGS (5)
  1. FLUOROURACIL [Suspect]
     Indication: OESOPHAGEAL SQUAMOUS CELL CARCINOMA
     Dosage: 750MG/M2 CONTINUOUS 24-H PERIPHERAL INFUSION ON DAYS 1-5  OF A 21-DAY CYCLE
     Route: 042
  2. DOCETAXEL [Suspect]
     Indication: OESOPHAGEAL SQUAMOUS CELL CARCINOMA
     Dosage: 70-75MG/M2 GIVEN AS A 1-H INTRAVENOUS INFUSION ON DAY 1
     Route: 042
  3. CISPLATIN [Suspect]
     Indication: OESOPHAGEAL SQUAMOUS CELL CARCINOMA
     Dosage: 70-75MG/MG2 GIVEN AS A 2-H INTRAVENOUS INFUSION ON DAY 1
     Route: 042
  4. DEXAMETHASONE [Concomitant]
     Indication: VOMITING
     Dosage: 5 DAYS
     Route: 065
  5. CIPROFLOXACIN [Concomitant]
     Indication: PROPHYLAXIS
     Dosage: 600 MG, BID ON DAYS 1-5
     Route: 048

REACTIONS (1)
  - Wound infection [Unknown]
